FAERS Safety Report 4377474-8 (Version None)
Quarter: 2004Q2

REPORT INFORMATION
  Report Type: 
  Country: None (occurrence: None)
  Receive Date: 20040615
  Receipt Date: 20040528
  Transmission Date: 20050107
  Serious: Yes (Hospitalization, Disabling)
  Sender: FDA-Public Use
  Company Number: GB-AMGEN-US079120

PATIENT
  Sex: Female

DRUGS (6)
  1. ENBREL [Suspect]
     Indication: RHEUMATOID ARTHRITIS
     Route: 058
  2. HUMIRA [Suspect]
     Route: 058
     Dates: start: 20030401, end: 20040302
  3. SULFASALAZINE [Concomitant]
     Dates: start: 19960101
  4. CELECOXIB [Concomitant]
     Dates: start: 20020101
  5. FERROUS SULFATE TAB [Concomitant]
  6. CO-CODAMAOL [Concomitant]
     Dates: start: 19900101

REACTIONS (2)
  - ALVEOLITIS [None]
  - LOWER RESPIRATORY TRACT INFECTION [None]
